FAERS Safety Report 5035498-1 (Version None)
Quarter: 2006Q2

REPORT INFORMATION
  Report Type: 
  Country: None (occurrence: None)
  Receive Date: 20060526
  Receipt Date: 20060412
  Transmission Date: 20061013
  Serious: No
  Sender: FDA-Public Use
  Company Number: FABR-11475

PATIENT
  Age: 54 Year
  Sex: Male
  Weight: 47 kg

DRUGS (10)
  1. FABRAZYME [Suspect]
     Indication: FABRY'S DISEASE
     Dosage: 50 MG Q2WKS IV
     Route: 042
     Dates: start: 20051201
  2. SYNTHROID [Concomitant]
  3. ISOSORBIDE [Concomitant]
  4. PLAVIX [Concomitant]
  5. COREG [Concomitant]
  6. LIPITOR [Concomitant]
  7. ASPIRIN [Concomitant]
  8. NITROGLYCERIN [Concomitant]
  9. FOLATE [Concomitant]
  10. BENADRYL [Concomitant]

REACTIONS (2)
  - CHILLS [None]
  - HEADACHE [None]
